FAERS Safety Report 16624826 (Version 1)
Quarter: 2019Q3

REPORT INFORMATION
  Report Type: Other
  Country: CA (occurrence: CA)
  Receive Date: 20190724
  Receipt Date: 20190724
  Transmission Date: 20191004
  Serious: Yes (Disabling)
  Sender: FDA-Public Use
  Company Number: CA-APOTEX-2019AP018585

PATIENT
  Age: 53 Year
  Sex: Male
  Weight: 106 kg

DRUGS (1)
  1. APO-ATORVASTATIN [Suspect]
     Active Substance: ATORVASTATIN
     Indication: HYPERCHOLESTEROLAEMIA
     Dosage: 20 MG, QD
     Route: 048

REACTIONS (8)
  - Amnesia [Recovered/Resolved]
  - Fatigue [Recovered/Resolved]
  - Lethargy [Recovered/Resolved]
  - Asthenia [Recovered/Resolved]
  - Dizziness [Recovered/Resolved]
  - Myalgia [Recovered/Resolved]
  - Confusional state [Recovered/Resolved]
  - Joint range of motion decreased [Recovered/Resolved]
